FAERS Safety Report 5069528-8 (Version None)
Quarter: 2006Q3

REPORT INFORMATION
  Report Type: 
  Country: None (occurrence: None)
  Receive Date: 20060803
  Receipt Date: 20060710
  Transmission Date: 20061208
  Serious: Yes (Other)
  Sender: FDA-Public Use
  Company Number: PHBS2006NL10316

PATIENT
  Age: 11 Year
  Sex: Male

DRUGS (2)
  1. DESFERAL [Suspect]
     Indication: THALASSAEMIA
     Dosage: UNK, UNK
     Route: 058
     Dates: start: 19970101, end: 20060424
  2. DESFERAL [Suspect]
     Route: 058
     Dates: start: 20060506

REACTIONS (4)
  - BLISTER [None]
  - SKIN DISORDER [None]
  - SKIN INFLAMMATION [None]
  - SKIN NECROSIS [None]
